FAERS Safety Report 9163845 (Version 2)
Quarter: 2013Q1

REPORT INFORMATION
  Report Type: Spontaneous
  Country: FR (occurrence: FR)
  Receive Date: 20130314
  Receipt Date: 20130328
  Transmission Date: 20140127
  Serious: Yes (Hospitalization)
  Sender: FDA-Public Use
  Company Number: FR-VERTEX PHARMACEUTICALS INC.-2013-003578

PATIENT
  Age: 62 Year
  Sex: Female
  Weight: 48 kg

DRUGS (5)
  1. INCIVO [Suspect]
     Indication: HEPATITIS C
     Dosage: 750 MG, TID
     Route: 048
     Dates: start: 20120928, end: 20121218
  2. PEGINTERFERON ALFA-2A [Suspect]
     Indication: HEPATITIS C
     Dosage: 180 ?G, QW
     Route: 058
     Dates: start: 20120928, end: 20130111
  3. RIBAVIRIN [Suspect]
     Indication: HEPATITIS C
     Dosage: 600 MG, BID
     Route: 048
     Dates: start: 20120928, end: 20130111
  4. BIPRETERAX [Concomitant]
     Indication: HYPERTENSION
     Dosage: DOSAGE FORM: CAPSULE, 1 DOSE FORM
     Route: 048
     Dates: start: 20090122
  5. PLAVIX [Concomitant]
     Indication: HYPERTENSION
     Dosage: DOSAGE FORM: CAPSULE
     Route: 048
     Dates: start: 2008

REACTIONS (3)
  - Urinary tract infection [Recovered/Resolved]
  - Malaise [Unknown]
  - Anaemia [Unknown]
